FAERS Safety Report 10096156 (Version 1)
Quarter: 2014Q2

REPORT INFORMATION
  Report Type: Other
  Country: NL (occurrence: NL)
  Receive Date: 20140422
  Receipt Date: 20140422
  Transmission Date: 20141212
  Serious: Yes (Other)
  Sender: FDA-Public Use
  Company Number: NL-BRISTOL-MYERS SQUIBB COMPANY-20632972

PATIENT
  Age: 21 Year
  Sex: Female

DRUGS (7)
  1. CARBOPLATIN [Suspect]
     Indication: MEDULLOBLASTOMA
     Dosage: 1DF = AUC 5(4 COURSE);REDUCED TO AUC 4(6 COURSE) ?REINTRODUCED 1 COURSE
  2. CARBOPLATIN [Suspect]
     Indication: METASTASES TO MENINGES
     Dosage: 1DF = AUC 5(4 COURSE);REDUCED TO AUC 4(6 COURSE) ?REINTRODUCED 1 COURSE
  3. ETOPOSIDE [Suspect]
     Indication: MEDULLOBLASTOMA
     Dosage: 40MG/M2 DAY 1-4(6COURSE);150MG/M2 DAY1(4 COURSE)?75MG/M2(6COUSE)?REINTRODUCED
  4. ETOPOSIDE [Suspect]
     Indication: METASTASES TO MENINGES
     Dosage: 40MG/M2 DAY 1-4(6COURSE);150MG/M2 DAY1(4 COURSE)?75MG/M2(6COUSE)?REINTRODUCED
  5. CISPLATIN [Concomitant]
     Dosage: DAY 1-4;4 COURSE
  6. CYCLOPHOSPHAMIDE [Concomitant]
     Dosage: DAY 1
  7. TEMOZOLOMIDE [Concomitant]
     Dosage: 3 COURSES

REACTIONS (2)
  - Bone marrow failure [Unknown]
  - Neurological examination abnormal [Unknown]
